FAERS Safety Report 7565953 (Version 5)
Quarter: 2014Q1

REPORT INFORMATION
  Report Type: Spontaneous
  Country: US (occurrence: US)
  Receive Date: 20100830
  Receipt Date: 20140307
  Transmission Date: 20141002
  Serious: Yes (Hospitalization, Other)
  Sender: FDA-Public Use
  Company Number: US-BAYER-201031743NA

PATIENT
  Age: 18 Year
  Sex: Female
  Weight: 56.69 kg

DRUGS (10)
  1. YAZ [Suspect]
     Dosage: UNK
     Route: 048
     Dates: start: 200205
  2. YASMIN [Suspect]
     Dosage: UNK
     Route: 048
     Dates: start: 200205, end: 20041210
  3. TRAZODONE [Concomitant]
  4. LEXAPRO [Concomitant]
  5. SEASONALE [Concomitant]
     Dosage: UNK
     Dates: start: 20040420, end: 20040722
  6. ZITHROMAX [Concomitant]
     Dosage: UNK
     Dates: start: 20051216
  7. TUMS [CALCIUM CARBONATE] [Concomitant]
  8. METAMFETAMINE [Concomitant]
  9. OMEPRAZOLE [Concomitant]
     Indication: GASTRITIS
  10. FAMOTIDINE [Concomitant]
     Indication: GASTRITIS

REACTIONS (10)
  - Gallbladder disorder [Unknown]
  - Abdominal pain [Unknown]
  - Abdominal pain upper [Unknown]
  - Weight decreased [None]
  - Gastrooesophageal reflux disease [None]
  - Costochondritis [None]
  - Oesophageal spasm [None]
  - Pain [Unknown]
  - Cholelithiasis [None]
  - Cholecystitis chronic [None]
